FAERS Safety Report 11179494 (Version 2)
Quarter: 2015Q2

REPORT INFORMATION
  Report Type: Spontaneous
  Country: TR (occurrence: TR)
  Receive Date: 20150611
  Receipt Date: 20150630
  Transmission Date: 20150821
  Serious: Yes (Hospitalization, Other)
  Sender: FDA-Public Use
  Company Number: TR-PAR PHARMACEUTICAL, INC-2015SCPR014031

PATIENT

DRUGS (2)
  1. FLUOXETINE [Suspect]
     Active Substance: FLUOXETINE\FLUOXETINE HYDROCHLORIDE
     Indication: ANXIETY
     Dosage: 20 MG, UNKNOWN
     Route: 065
  2. UNSPECIFIED [Concomitant]
     Active Substance: UNSPECIFIED INGREDIENT
     Indication: ANXIETY
     Dosage: 3 DF, UNKNOWN
     Route: 065

REACTIONS (2)
  - Toxicity to various agents [Unknown]
  - Pulmonary haemosiderosis [Recovered/Resolved]
